FAERS Safety Report 6105734-9 (Version None)
Quarter: 2009Q1

REPORT INFORMATION
  Report Type: 
  Country: None (occurrence: None)
  Receive Date: 20090304
  Receipt Date: 20090304
  Transmission Date: 20090719
  Serious: Yes (Hospitalization)
  Sender: FDA-Public Use
  Company Number: None

PATIENT
  Weight: 54.9 kg

DRUGS (3)
  1. DOCETAXEL [Suspect]
     Indication: HEAD AND NECK CANCER
     Dosage: 75 MG/M2 EVERY 21 DAYS
     Dates: start: 20081028, end: 20090121
  2. DOCETAXEL [Suspect]
     Indication: SQUAMOUS CELL CARCINOMA
     Dosage: 75 MG/M2 EVERY 21 DAYS
     Dates: start: 20081028, end: 20090121
  3. ZACTIMA [Suspect]
     Dosage: 100 MG EVERY DAY
     Dates: start: 20081028, end: 20090128

REACTIONS (1)
  - GASTROENTERITIS VIRAL [None]
